FAERS Safety Report 15514668 (Version 1)
Quarter: 2018Q4

REPORT INFORMATION
  Report Type: Spontaneous
  Country: US (occurrence: US)
  Receive Date: 20181016
  Receipt Date: 20181016
  Transmission Date: 20190205
  Serious: Yes (Death, Hospitalization, Other)
  Sender: FDA-Public Use
  Company Number: US-JNJFOC-20181019024

PATIENT

DRUGS (1)
  1. EVICEL [Suspect]
     Active Substance: FIBRINOGEN HUMAN\THROMBIN HUMAN
     Indication: TISSUE SEALING
     Route: 061

REACTIONS (7)
  - Pneumonia [Unknown]
  - Product use in unapproved indication [Unknown]
  - Death [Fatal]
  - Respiratory disorder [Unknown]
  - Off label use [Unknown]
  - Infection [Unknown]
  - Emphysema [Unknown]
